FAERS Safety Report 21395496 (Version 1)
Quarter: 2022Q3

REPORT INFORMATION
  Report Type: Spontaneous
  Country: TW (occurrence: TW)
  Receive Date: 20220930
  Receipt Date: 20220930
  Transmission Date: 20221027
  Serious: Yes (Other)
  Sender: FDA-Public Use
  Company Number: TW-ASPEN-GLO2022TW005624

PATIENT

DRUGS (1)
  1. LEUKERAN [Suspect]
     Active Substance: CHLORAMBUCIL
     Indication: Waldenstrom^s macroglobulinaemia
     Dosage: 2 MG, 1 DOSE DAILY FOR 6MONTHS
     Route: 048

REACTIONS (2)
  - Drug ineffective [Unknown]
  - Waldenstrom^s macroglobulinaemia [Not Recovered/Not Resolved]
